FAERS Safety Report 20971446 (Version 1)
Quarter: 2022Q2

REPORT INFORMATION
  Report Type: Report from Study
  Country: US (occurrence: US)
  Receive Date: 20220616
  Receipt Date: 20220616
  Transmission Date: 20220720
  Serious: Yes (Hospitalization)
  Sender: FDA-Public Use
  Company Number: US-ABBVIE-22K-163-4435161-00

PATIENT
  Sex: Male

DRUGS (1)
  1. VENCLEXTA [Suspect]
     Active Substance: VENETOCLAX
     Indication: Plasma cell myeloma
     Dosage: TABLET WITH FOOD AND FULL GLASS OF WATER
     Route: 048

REACTIONS (3)
  - Endotracheal intubation [Unknown]
  - Medical device site injury [Unknown]
  - Dysphagia [Unknown]
